FAERS Safety Report 24904540 (Version 1)
Quarter: 2025Q1

REPORT INFORMATION
  Report Type: Spontaneous
  Country: BR (occurrence: None)
  Receive Date: 20250130
  Receipt Date: 20250130
  Transmission Date: 20250408
  Serious: Yes (Death, Hospitalization, Other)
  Sender: UNICHEM
  Company Number: BR-Unichem Pharmaceuticals (USA) Inc-UCM202501-000134

PATIENT
  Age: 15 Year
  Sex: Female
  Weight: 54 kg

DRUGS (2)
  1. DIVALPROEX SODIUM [Suspect]
     Active Substance: DIVALPROEX SODIUM
     Indication: Product used for unknown indication
  2. QUETIAPINE [Suspect]
     Active Substance: QUETIAPINE
     Indication: Product used for unknown indication

REACTIONS (16)
  - Cardio-respiratory arrest [Fatal]
  - Hypovolaemic shock [Unknown]
  - Arrhythmia [Unknown]
  - Pneumonia aspiration [Unknown]
  - Respiratory failure [Unknown]
  - Hepatic failure [Unknown]
  - Pancreatic failure [Unknown]
  - Renal injury [Unknown]
  - Metabolic acidosis [Unknown]
  - Unresponsive to stimuli [Unknown]
  - Electrolyte imbalance [Unknown]
  - Cyanosis [Unknown]
  - Leukocytosis [Unknown]
  - Mydriasis [Unknown]
  - Toxicity to various agents [Unknown]
  - Intentional overdose [Unknown]

NARRATIVE: CASE EVENT DATE: 20240407
